FAERS Safety Report 7043903-4 (Version None)
Quarter: 2010Q4

REPORT INFORMATION
  Report Type: 
  Country: None (occurrence: None)
  Receive Date: 20101012
  Receipt Date: 20101012
  Transmission Date: 20110411
  Serious: Yes (Other)
  Sender: FDA-Public Use
  Company Number: None

PATIENT
  Age: 59 Year
  Sex: Male
  Weight: 97.5234 kg

DRUGS (1)
  1. LISINOPRIL [Suspect]
     Indication: HYPERTENSION
     Dosage: 20 MG PILL 1 A DAY PO
     Route: 048
     Dates: start: 20100902, end: 20101008

REACTIONS (3)
  - RASH PRURITIC [None]
  - SKIN DISORDER [None]
  - SKIN HAEMORRHAGE [None]
